FAERS Safety Report 10666023 (Version 1)
Quarter: 2014Q4

REPORT INFORMATION
  Report Type: Spontaneous
  Country: JP (occurrence: JP)
  Receive Date: 20141219
  Receipt Date: 20141219
  Transmission Date: 20150529
  Serious: Yes (Other)
  Sender: FDA-Public Use
  Company Number: JP-BAYER-2014-186274

PATIENT
  Age: 69 Year
  Sex: Male
  Weight: 66 kg

DRUGS (8)
  1. STIVARGA [Suspect]
     Active Substance: REGORAFENIB
     Indication: RECTAL CANCER
     Dosage: 160 MG, QD
     Route: 048
     Dates: start: 20140820, end: 20140909
  2. PARIET [Concomitant]
     Active Substance: RABEPRAZOLE SODIUM
     Route: 048
  3. BAYASPIRIN [Suspect]
     Active Substance: ASPIRIN
     Dosage: UNK
     Route: 048
     Dates: end: 20140902
  4. CRAVIT [Concomitant]
     Active Substance: LEVOFLOXACIN
     Indication: PYREXIA
     Dosage: UNK
     Dates: start: 20140904, end: 20140916
  5. LOXOPROFEN [Concomitant]
     Active Substance: LOXOPROFEN
     Dosage: UNK
     Route: 048
     Dates: start: 20140819
  6. DIOVAN [Concomitant]
     Active Substance: VALSARTAN
     Dosage: UNK
     Route: 048
     Dates: end: 20140826
  7. PYDOXAL [Concomitant]
     Active Substance: PYRIDOXAL
     Dosage: UNK
     Route: 048
     Dates: start: 20140819
  8. HIRUDOID [Concomitant]
     Active Substance: GLYCOSAMINOGLYCANS
     Dosage: UNK
     Route: 061
     Dates: start: 20140819

REACTIONS (3)
  - Hypertension [Recovered/Resolved]
  - Epistaxis [Recovered/Resolved]
  - Hepatic function abnormal [Recovered/Resolved]

NARRATIVE: CASE EVENT DATE: 20140821
